FAERS Safety Report 22165005 (Version 2)
Quarter: 2023Q2

REPORT INFORMATION
  Report Type: Spontaneous
  Country: SK (occurrence: SK)
  Receive Date: 20230403
  Receipt Date: 20230414
  Transmission Date: 20230722
  Serious: Yes (Hospitalization, Other)
  Sender: FDA-Public Use
  Company Number: SK-PHARMAESSENTIA CORPORATION-SK-2023-PEC-001236

PATIENT

DRUGS (3)
  1. BESREMI [Suspect]
     Active Substance: ROPEGINTERFERON ALFA-2B-NJFT
     Indication: Primary myelofibrosis
     Route: 058
     Dates: start: 202201, end: 20230217
  2. ASPIRIN [Concomitant]
     Active Substance: ASPIRIN
     Indication: Thrombocytosis
     Dosage: 100 MILLIGRAM
     Route: 048
     Dates: start: 202111
  3. ANAGRELIDE [Concomitant]
     Active Substance: ANAGRELIDE
     Indication: Thrombocytosis
     Dosage: 0.5 MILLIGRAM, BID
     Route: 048
     Dates: start: 20221222, end: 20230217

REACTIONS (3)
  - Pancreatic carcinoma [Unknown]
  - Liver disorder [Not Recovered/Not Resolved]
  - Off label use [Unknown]

NARRATIVE: CASE EVENT DATE: 20230201
